FAERS Safety Report 14964436 (Version 2)
Quarter: 2018Q2

REPORT INFORMATION
  Report Type: Spontaneous
  Country: US (occurrence: US)
  Receive Date: 20180601
  Receipt Date: 20180613
  Transmission Date: 20180711
  Serious: Yes (Hospitalization, Disabling, Other)
  Sender: FDA-Public Use
  Company Number: US-JNJFOC-20180527984

PATIENT
  Age: 59 Year
  Sex: Male

DRUGS (1)
  1. INVOKANA [Suspect]
     Active Substance: CANAGLIFLOZIN
     Indication: TYPE 2 DIABETES MELLITUS
     Route: 048
     Dates: start: 20151105

REACTIONS (8)
  - Gangrene [Recovering/Resolving]
  - Thermal burn [Unknown]
  - Impaired healing [Unknown]
  - Amputation [Unknown]
  - Osteomyelitis [Recovering/Resolving]
  - Cellulitis [Recovering/Resolving]
  - Dry gangrene [Unknown]
  - Skin ulcer [Recovering/Resolving]

NARRATIVE: CASE EVENT DATE: 201604
